FAERS Safety Report 6381108-0 (Version None)
Quarter: 2009Q3

REPORT INFORMATION
  Report Type: 
  Country: None (occurrence: None)
  Receive Date: 20090929
  Receipt Date: 20090921
  Transmission Date: 20100115
  Serious: Yes (Hospitalization, Other)
  Sender: FDA-Public Use
  Company Number: US-JNJFOC-20090107039

PATIENT
  Sex: Female

DRUGS (11)
  1. RISPERDAL [Suspect]
     Indication: BIPOLAR DISORDER
     Dates: start: 20040429, end: 20070706
  2. SEROQUEL [Suspect]
     Indication: BIPOLAR DISORDER
     Dates: start: 20041115, end: 20070201
  3. PERPHENAZINE [Concomitant]
     Route: 065
  4. BENZATROPINE [Concomitant]
     Dosage: 1 MG IN THE MORNING AND IN THE NIGHT
     Route: 065
  5. LAMICTAL [Concomitant]
     Route: 065
  6. TRAZODONE [Concomitant]
     Dosage: EVERY NIGHT
     Route: 065
  7. DIOVAN [Concomitant]
     Route: 065
  8. WELLBUTRIN [Concomitant]
     Route: 065
  9. LUNESTA [Concomitant]
     Route: 065
  10. LOTREL [Concomitant]
     Route: 065
  11. EFFEXOR [Concomitant]
     Route: 065

REACTIONS (2)
  - LIVER FUNCTION TEST ABNORMAL [None]
  - TYPE 2 DIABETES MELLITUS [None]
